FAERS Safety Report 8560913-6 (Version None)
Quarter: 2012Q3

REPORT INFORMATION
  Report Type: 
  Country: None (occurrence: None)
  Receive Date: 20120802
  Receipt Date: 20120726
  Transmission Date: 20120928
  Serious: Yes (Other)
  Sender: FDA-Public Use
  Company Number: JP-VERTEX PHARMACEUTICALS INC.-AE-2012-006010

PATIENT
  Age: 67 Year
  Sex: Male

DRUGS (16)
  1. LASIX [Concomitant]
     Route: 048
     Dates: end: 20120420
  2. WARFARIN [Concomitant]
     Route: 048
     Dates: start: 20120422
  3. WARFARIN [Concomitant]
     Route: 048
     Dates: end: 20120420
  4. CONIEL [Concomitant]
     Route: 048
     Dates: end: 20120420
  5. BISOPROLOL FUMARATE [Concomitant]
     Route: 048
     Dates: end: 20120420
  6. BISOPROLOL FUMARATE [Concomitant]
     Route: 048
     Dates: start: 20120422
  7. LASIX [Concomitant]
     Route: 048
     Dates: start: 20120422
  8. TELAVIC (TELAPREVIR) [Suspect]
     Indication: HEPATITIS C
     Route: 048
     Dates: start: 20120418, end: 20120420
  9. PEGINTERFERON ALFA-2B [Concomitant]
     Indication: HEPATITIS C
     Route: 058
     Dates: start: 20120418, end: 20120418
  10. LOSARTAN POTASSIUM AND HYDROCHLOROTHIAZIDE [Concomitant]
     Route: 048
     Dates: start: 20120422
  11. DIGOXIN [Concomitant]
     Route: 048
     Dates: start: 20120422
  12. CONIEL [Concomitant]
     Route: 048
     Dates: start: 20120422
  13. REBETOL [Concomitant]
     Indication: HEPATITIS C
     Route: 048
     Dates: start: 20120418, end: 20120420
  14. DIGOXIN [Concomitant]
     Route: 048
     Dates: end: 20120420
  15. LOSARTAN POTASSIUM AND HYDROCHLOROTHIAZIDE [Concomitant]
     Route: 048
     Dates: end: 20120420
  16. LOSARTAN POTASSIUM AND HYDROCHLOROTHIAZIDE [Concomitant]
     Route: 048
     Dates: end: 20120420

REACTIONS (5)
  - RENAL FAILURE ACUTE [None]
  - HAEMOGLOBIN DECREASED [None]
  - BLOOD PRESSURE DECREASED [None]
  - PYREXIA [None]
  - HEART RATE DECREASED [None]
